FAERS Safety Report 6006817-4 (Version None)
Quarter: 2008Q4

REPORT INFORMATION
  Report Type: 
  Country: None (occurrence: None)
  Receive Date: 20081217
  Receipt Date: 20080124
  Transmission Date: 20090506
  Serious: No
  Sender: FDA-Public Use
  Company Number: US-ASTRAZENECA-2007UW23113

PATIENT
  Age: 25273 Day
  Sex: Female

DRUGS (5)
  1. CRESTOR [Suspect]
     Indication: BLOOD CHOLESTEROL
     Route: 048
     Dates: start: 20070901, end: 20071001
  2. ALDACTAZIDE [Concomitant]
     Dosage: 25/50 QD
     Route: 048
  3. TOPROL-XL [Concomitant]
     Route: 048
  4. MACRODANTIN [Concomitant]
     Route: 048
  5. DOXAZOSIN MESYLATE [Concomitant]
     Dosage: 2 MG, 1/2 QHS
     Route: 048

REACTIONS (1)
  - CHEILITIS [None]
